FAERS Safety Report 6382531-0 (Version None)
Quarter: 2009Q3

REPORT INFORMATION
  Report Type: 
  Country: None (occurrence: None)
  Receive Date: 20090930
  Receipt Date: 20090916
  Transmission Date: 20100115
  Serious: Yes (Other)
  Sender: FDA-Public Use
  Company Number: MX-MYLANLABS-2009S1016298

PATIENT
  Age: 53 Year
  Sex: Female

DRUGS (1)
  1. TAMOXIFEN CITRATE [Suspect]
     Indication: BREAST CANCER
     Dosage: 20MG DAILY

REACTIONS (6)
  - ARTHRALGIA [None]
  - ARTHRITIS [None]
  - CHOLESTASIS [None]
  - OEDEMA PERIPHERAL [None]
  - PARAESTHESIA [None]
  - VASCULITIS [None]
